FAERS Safety Report 19259576 (Version 1)
Quarter: 2021Q2

REPORT INFORMATION
  Report Type: Spontaneous
  Country: GB (occurrence: GB)
  Receive Date: 20210514
  Receipt Date: 20210514
  Transmission Date: 20210717
  Serious: Yes (Other)
  Sender: FDA-Public Use
  Company Number: GB-POPULATION COUNCIL-2021TPC000046

PATIENT
  Age: 41 Year
  Sex: Female
  Weight: 49 kg

DRUGS (2)
  1. JADELLE [Suspect]
     Active Substance: LEVONORGESTREL
     Indication: CONTRACEPTION
     Route: 059
     Dates: start: 20190523, end: 20200313
  2. ANTIVIRALS FOR TREATMENT OF HIV INFECTIONS, COMBINATIONS [Suspect]
     Active Substance: UNSPECIFIED INGREDIENT
     Indication: PRODUCT USED FOR UNKNOWN INDICATION
     Route: 065
     Dates: start: 20181001

REACTIONS (2)
  - Labelled drug-drug interaction medication error [Unknown]
  - Pregnancy with implant contraceptive [Unknown]

NARRATIVE: CASE EVENT DATE: 20190523
